FAERS Safety Report 24286812 (Version 2)
Quarter: 2024Q4

REPORT INFORMATION
  Report Type: Spontaneous
  Country: US (occurrence: US)
  Receive Date: 20240905
  Receipt Date: 20241009
  Transmission Date: 20250114
  Serious: No
  Sender: PFIZER
  Company Number: US-PFIZER INC-PV202400115801

PATIENT
  Age: 56 Year
  Sex: Female

DRUGS (1)
  1. XELJANZ XR [Suspect]
     Active Substance: TOFACITINIB CITRATE
     Dosage: 11 MG

REACTIONS (6)
  - Throat clearing [Unknown]
  - Alopecia [Unknown]
  - Weight decreased [Recovering/Resolving]
  - Abdominal pain upper [Unknown]
  - Abdominal discomfort [Unknown]
  - Product dose omission issue [Unknown]
